FAERS Safety Report 26216421 (Version 1)
Quarter: 2025Q4

REPORT INFORMATION
  Report Type: Spontaneous
  Country: US (occurrence: US)
  Receive Date: 20251231
  Receipt Date: 20251231
  Transmission Date: 20260117
  Serious: Yes (Other)
  Sender: ALEMBIC
  Company Number: US-ALEMBIC PHARMACUETICALS LIMITED-2025SCAL001885

PATIENT

DRUGS (2)
  1. ERYTHROMYCIN [Suspect]
     Active Substance: ERYTHROMYCIN
     Indication: Osteomyelitis
     Dosage: UNK (FOR 6 WEEKS)
     Route: 065
  2. DOXYCYCLINE [Suspect]
     Active Substance: DOXYCYCLINE
     Indication: Osteomyelitis
     Dosage: UNK
     Route: 065

REACTIONS (5)
  - Crystal nephropathy [Recovering/Resolving]
  - Renal tubular injury [Unknown]
  - Blood creatinine increased [Recovered/Resolved]
  - Acute kidney injury [Unknown]
  - Diarrhoea [Unknown]
